FAERS Safety Report 4655093-3 (Version None)
Quarter: 2005Q2

REPORT INFORMATION
  Report Type: 
  Country: None (occurrence: None)
  Receive Date: 20050505
  Receipt Date: 20050429
  Transmission Date: 20051028
  Serious: Yes (Hospitalization)
  Sender: FDA-Public Use
  Company Number: 2005-127882-NL

PATIENT
  Age: 57 Year
  Sex: Female

DRUGS (10)
  1. MIRTAZAPINE [Suspect]
  2. URSODEOXYCHOLIC ACID [Concomitant]
  3. CLONAZEPAM [Concomitant]
  4. DEPAKENE [Concomitant]
  5. PRAZEPAM [Concomitant]
  6. TRIHEXYPHENIDYL HCL [Concomitant]
  7. LEVOMEPROMAZINE [Concomitant]
  8. HEPTAMINOL [Concomitant]
  9. OXAZEPAM [Concomitant]
  10. HALOPERIDOL [Concomitant]

REACTIONS (1)
  - HAEMOLYTIC ANAEMIA [None]
